FAERS Safety Report 6905865-7 (Version None)
Quarter: 2010Q3

REPORT INFORMATION
  Report Type: 
  Country: None (occurrence: None)
  Receive Date: 20100804
  Receipt Date: 20100722
  Transmission Date: 20110219
  Serious: Yes (Hospitalization)
  Sender: FDA-Public Use
  Company Number: US-ELI_LILLY_AND_COMPANY-US201007005357

PATIENT
  Age: 31 Year
  Sex: Male

DRUGS (6)
  1. CYMBALTA [Suspect]
     Indication: DEPRESSION
     Dosage: UNK, UNK
  2. HUMIRA [Concomitant]
     Indication: CROHN'S DISEASE
     Dosage: 40 MG, UNK
     Dates: start: 20100501
  3. BUPROPION [Concomitant]
     Indication: DEPRESSION
     Dosage: 150 MG, UNK
  4. CLONAZEPAM [Concomitant]
     Indication: DEPRESSION
     Dosage: 1 MG, UNK
  5. MULTIPLE VITAMINS [Concomitant]
     Indication: VITAMIN SUPPLEMENTATION
  6. VARDENAFIL HYDROCHLORIDE (LEVITRA) [Concomitant]
     Indication: ERECTILE DYSFUNCTION

REACTIONS (3)
  - DEPRESSION [None]
  - ERECTILE DYSFUNCTION [None]
  - RECTAL DISCHARGE [None]
